FAERS Safety Report 6303758-X (Version None)
Quarter: 2009Q3

REPORT INFORMATION
  Report Type: 
  Country: None (occurrence: None)
  Receive Date: 20090805
  Receipt Date: 20090727
  Transmission Date: 20100115
  Serious: Yes (Other)
  Sender: FDA-Public Use
  Company Number: 09-001222

PATIENT
  Age: 84 Year
  Sex: Female

DRUGS (3)
  1. FEMRING [Suspect]
     Indication: PROPHYLAXIS URINARY TRACT INFECTION
     Dosage: 0.05 MG, QD, VAGINAL
     Route: 067
     Dates: start: 20080101, end: 20090101
  2. MULTIVITAMIN  /00831701/ (VITAMINS NOS) [Concomitant]
  3. VERAPAMIL [Concomitant]

REACTIONS (2)
  - CONDITION AGGRAVATED [None]
  - OVARIAN CYST [None]
